FAERS Safety Report 19992035 (Version 3)
Quarter: 2021Q4

REPORT INFORMATION
  Report Type: Spontaneous
  Country: AT (occurrence: AT)
  Receive Date: 20211025
  Receipt Date: 20211209
  Transmission Date: 20220304
  Serious: Yes (Other)
  Sender: FDA-Public Use
  Company Number: AT-009507513-2110AUT005242

PATIENT
  Age: 79 Year
  Sex: Male

DRUGS (2)
  1. PEMBROLIZUMAB [Suspect]
     Active Substance: PEMBROLIZUMAB
     Indication: Squamous cell carcinoma of the tongue
     Dosage: 200 MILLIGRAM, Q3W
     Dates: start: 20200206, end: 202004
  2. PEMBROLIZUMAB [Suspect]
     Active Substance: PEMBROLIZUMAB
     Dosage: UNK
     Dates: start: 2020

REACTIONS (7)
  - Pneumonia bacterial [Recovered/Resolved]
  - Thoracic vertebral fracture [Unknown]
  - Malignant neoplasm progression [Unknown]
  - Dysphagia [Recovering/Resolving]
  - Overgrowth fungal [Recovering/Resolving]
  - Laryngopharyngitis [Recovering/Resolving]
  - Complication associated with device [Unknown]

NARRATIVE: CASE EVENT DATE: 20200401
